FAERS Safety Report 5134471-2 (Version None)
Quarter: 2006Q4

REPORT INFORMATION
  Report Type: 
  Country: None (occurrence: None)
  Receive Date: 20061025
  Receipt Date: 20060609
  Transmission Date: 20070319
  Serious: Yes (Death)
  Sender: FDA-Public Use
  Company Number: JP-AVENTIS-200611799JP

PATIENT
  Age: 67 Year
  Sex: Male
  Weight: 71 kg

DRUGS (9)
  1. TAXOTERE [Suspect]
     Indication: GASTRIC CANCER
     Route: 041
     Dates: start: 20060525, end: 20060525
  2. TS-1 [Suspect]
     Indication: GASTRIC CANCER
     Route: 048
     Dates: start: 20060525, end: 20060526
  3. ALBUMINAR [Concomitant]
     Indication: ASCITES
     Route: 051
     Dates: start: 20060522, end: 20060526
  4. DECADRON                           /00016001/ [Concomitant]
     Route: 048
     Dates: start: 20050525, end: 20050527
  5. DECADRON                           /00016001/ [Concomitant]
     Route: 051
     Dates: start: 20060525, end: 20060525
  6. KYTRIL                             /01178101/ [Concomitant]
     Dosage: DOSE: 1 AMPULE
     Route: 051
     Dates: start: 20060525, end: 20060525
  7. SOLITA-T3 [Concomitant]
     Route: 051
     Dates: start: 20060525, end: 20060525
  8. ALDACTONE [Concomitant]
     Indication: ASCITES
     Route: 048
     Dates: start: 20060518, end: 20060531
  9. LASIX [Concomitant]
     Indication: ASCITES
     Route: 048
     Dates: start: 20060518, end: 20060531

REACTIONS (13)
  - ALANINE AMINOTRANSFERASE INCREASED [None]
  - ANOREXIA [None]
  - ASPARTATE AMINOTRANSFERASE INCREASED [None]
  - BLOOD ALKALINE PHOSPHATASE INCREASED [None]
  - BLOOD BILIRUBIN INCREASED [None]
  - BLOOD CREATININE INCREASED [None]
  - BLOOD UREA ABNORMAL [None]
  - BONE MARROW FAILURE [None]
  - CARDIOVASCULAR DISORDER [None]
  - HEPATIC FUNCTION ABNORMAL [None]
  - MALAISE [None]
  - PANCYTOPENIA [None]
  - TUMOUR HAEMORRHAGE [None]
